FAERS Safety Report 5729282-0 (Version None)
Quarter: 2008Q2

REPORT INFORMATION
  Report Type: 
  Country: None (occurrence: None)
  Receive Date: 20080430
  Receipt Date: 20080206
  Transmission Date: 20081010
  Serious: No
  Sender: FDA-Public Use
  Company Number: 2008PV034171

PATIENT
  Sex: Female

DRUGS (1)
  1. SYMLIN [Suspect]
     Dosage: ;SC
     Route: 058

REACTIONS (1)
  - INJECTION SITE PAIN [None]
